FAERS Safety Report 25813426 (Version 1)
Quarter: 2025Q3

REPORT INFORMATION
  Report Type: Spontaneous
  Country: EU (occurrence: EU)
  Receive Date: 20250917
  Receipt Date: 20250917
  Transmission Date: 20251021
  Serious: Yes (Hospitalization)
  Sender: TEVA
  Company Number: None

PATIENT
  Age: 66 Year
  Sex: Male
  Weight: 69 kg

DRUGS (4)
  1. CLOZAPINE [Interacting]
     Active Substance: CLOZAPINE
     Indication: Mental disorder
     Route: 048
     Dates: start: 20250227
  2. TROPATEPINE HYDROCHLORIDE [Interacting]
     Active Substance: TROPATEPINE HYDROCHLORIDE
     Indication: Mental disorder
     Route: 048
     Dates: start: 20250730
  3. HALOPERIDOL [Interacting]
     Active Substance: HALOPERIDOL
     Indication: Mental disorder
     Route: 048
     Dates: start: 20241223
  4. LOXAPINE [Interacting]
     Active Substance: LOXAPINE
     Indication: Mental disorder
     Route: 048
     Dates: start: 20241126

REACTIONS (2)
  - Intestinal obstruction [Recovered/Resolved]
  - Drug interaction [Recovered/Resolved]

NARRATIVE: CASE EVENT DATE: 20250816
